FAERS Safety Report 20384707 (Version 2)
Quarter: 2022Q1

REPORT INFORMATION
  Report Type: Spontaneous
  Country: US (occurrence: US)
  Receive Date: 20220127
  Receipt Date: 20220131
  Transmission Date: 20220423
  Serious: Yes (Death)
  Sender: FDA-Public Use
  Company Number: US-CELGENE-USA-20220106950

PATIENT
  Age: 73 Year
  Sex: Female
  Weight: 68.100 kg

DRUGS (1)
  1. POMALYST [Suspect]
     Active Substance: POMALIDOMIDE
     Indication: Plasma cell myeloma
     Dosage: 3 MILLIGRAM
     Route: 048
     Dates: start: 202112, end: 20220112

REACTIONS (1)
  - Death [Fatal]

NARRATIVE: CASE EVENT DATE: 20220112
